APPROVED DRUG PRODUCT: PENLAC
Active Ingredient: CICLOPIROX
Strength: 8% **Federal Register determination that product was not discontinued or withdrawn for safety or effectiveness reasons**
Dosage Form/Route: SOLUTION;TOPICAL
Application: N021022 | Product #001
Applicant: VALEANT INTERNATIONAL BERMUDA
Approved: Dec 17, 1999 | RLD: Yes | RS: No | Type: DISCN